FAERS Safety Report 8339828-4 (Version None)
Quarter: 2012Q2

REPORT INFORMATION
  Report Type: 
  Country: None (occurrence: None)
  Receive Date: 20120507
  Receipt Date: 20120430
  Transmission Date: 20120825
  Serious: Yes (Other)
  Sender: FDA-Public Use
  Company Number: US-CELGENEUS-163-21880-12020901

PATIENT
  Age: 68 Year
  Sex: Male
  Weight: 78.4 kg

DRUGS (77)
  1. DEXAMETHASONE [Suspect]
     Dosage: 40 MILLIGRAM
     Route: 048
     Dates: start: 20060824, end: 20060912
  2. LOVENOX [Concomitant]
     Dosage: 40 MILLIGRAM
     Route: 058
  3. MAGIC MOUTHWASH [Concomitant]
     Dosage: 5 MILLILITER
     Route: 048
  4. ALBUTEROL SULFATE [Concomitant]
     Dosage: 2.5 MILLIGRAM
     Route: 055
  5. PLAVIX [Concomitant]
     Dosage: 75 MILLIGRAM
     Route: 065
  6. REVLIMID [Suspect]
     Dosage: 25 MILLIGRAM
     Route: 048
     Dates: start: 20060420, end: 20060510
  7. REVLIMID [Suspect]
     Dosage: 25 MILLIGRAM
     Route: 048
     Dates: start: 20060921, end: 20061011
  8. LACTOBACILLUS GG [Concomitant]
     Dosage: 1
     Route: 048
  9. LEVOTHYROXINE SODIUM [Concomitant]
     Dosage: .1 MILLIGRAM
     Route: 048
  10. AMIODARONE HCL [Concomitant]
     Dosage: 100 MILLIGRAM
     Route: 048
  11. CHLORASEPTIC [Concomitant]
     Dosage: 1 SPRAY
     Route: 048
  12. KIONEX [Concomitant]
     Dosage: 15 GRAM
     Route: 048
  13. PRILOSEC [Concomitant]
     Dosage: 20 MILLIGRAM
     Route: 065
  14. NEUPOGEN [Concomitant]
     Indication: FULL BLOOD COUNT DECREASED
     Route: 065
  15. SKELAXIN [Concomitant]
     Dosage: 800 MILLIGRAM
     Route: 065
  16. REVLIMID [Suspect]
     Dosage: 25 MILLIGRAM
     Route: 048
     Dates: start: 20061122, end: 20061212
  17. REVLIMID [Suspect]
     Dosage: 25 MILLIGRAM
     Route: 048
     Dates: start: 20061221, end: 20070110
  18. DEXAMETHASONE [Suspect]
     Dosage: 20 MILLIGRAM
     Route: 048
     Dates: start: 20061019, end: 20070501
  19. DEXAMETHASONE [Suspect]
     Dosage: 20 MILLIGRAM
     Route: 048
     Dates: start: 20070607, end: 20070821
  20. THALIDOMIDE [Suspect]
     Dosage: 50 MILLIGRAM
     Route: 048
     Dates: start: 20111214
  21. MEGACE [Concomitant]
     Dosage: 400MG/10ML
     Route: 048
  22. OS-CAL 500 + D [Concomitant]
     Dosage: 1 TABLET
     Route: 048
  23. LORTAB [Concomitant]
     Indication: PAIN
     Dosage: 1
     Route: 048
  24. VITAMIN D [Concomitant]
     Dosage: 5000UNIT
     Route: 048
  25. EFFEXOR XR [Concomitant]
     Dosage: 150 MILLIGRAM
     Route: 048
     Dates: start: 20070524
  26. MAG OXIDE [Concomitant]
     Dosage: 400 MILLIGRAM
     Route: 048
  27. OXYCODONE HCL [Concomitant]
     Dosage: 5 MILLIGRAM
     Route: 065
  28. REVLIMID [Suspect]
     Dosage: 25 MILLIGRAM
     Route: 048
     Dates: start: 20060323, end: 20060412
  29. DEXAMETHASONE [Suspect]
     Dosage: 40 MILLIGRAM
     Route: 048
     Dates: start: 20060420, end: 20060509
  30. DEXAMETHASONE [Suspect]
     Dosage: 40 MILLIGRAM
     Route: 048
     Dates: start: 20060629, end: 20060718
  31. DEXAMETHASONE [Suspect]
     Dosage: 20 MILLIGRAM
     Route: 048
     Dates: start: 20060921, end: 20061010
  32. DEXAMETHASONE [Suspect]
     Dosage: 20 MILLIGRAM
     Route: 048
     Dates: start: 20070510, end: 20070513
  33. MYCAMINE [Concomitant]
     Dosage: 100 MILLILITER
     Route: 041
  34. NEPHROCAPS [Concomitant]
     Dosage: 1 CAPSULE
     Route: 048
  35. FINASTERIDE [Concomitant]
     Dosage: 5 MILLIGRAM
     Route: 048
  36. BACTRIM DS [Concomitant]
     Dosage: 800-160MG
     Route: 048
  37. MAG OXIDE [Concomitant]
     Dosage: 100 MILLIGRAM
     Route: 048
  38. FLUDROCORTISONE ACETATE [Concomitant]
     Dosage: .1 MILLIGRAM
     Route: 065
  39. LORAZEPAM [Concomitant]
     Indication: ANXIETY
     Dosage: 1 MILLIGRAM
     Route: 065
  40. HEPARIN [Concomitant]
     Indication: ATRIAL FIBRILLATION
     Dosage: 4000 UNITS
     Route: 058
  41. RED BLOOD CELLS [Concomitant]
     Indication: FULL BLOOD COUNT DECREASED
     Route: 041
  42. REVLIMID [Suspect]
     Dosage: 25 MILLIGRAM
     Route: 048
     Dates: start: 20060223, end: 20060315
  43. REVLIMID [Suspect]
     Dosage: 25 MILLIGRAM
     Route: 048
     Dates: start: 20070830, end: 20070919
  44. DEXAMETHASONE [Suspect]
     Dosage: 40 MILLIGRAM
     Route: 048
     Dates: start: 20060323, end: 20060411
  45. DEXAMETHASONE [Suspect]
     Dosage: 40 MILLIGRAM
     Route: 065
  46. ASPIRIN [Concomitant]
     Dosage: 325 MILLIGRAM
     Route: 048
  47. ASPIRIN [Concomitant]
     Dosage: 81 MILLIGRAM
     Route: 048
  48. MEGACE [Concomitant]
     Dosage: 625MG/5ML
     Route: 048
  49. MEGESTROL ACETATE [Concomitant]
     Dosage: 800 MILLIGRAM
     Route: 048
  50. NIFEREX-150 FORTE [Concomitant]
     Dosage: 1 CAPSULE
     Route: 048
  51. PANTOPRAZOLE [Concomitant]
     Dosage: 40 MILLIGRAM
     Route: 048
  52. PAMIDRONATE DISODIUM [Concomitant]
     Route: 065
  53. REVLIMID [Suspect]
     Dosage: 25 MILLIGRAM
     Route: 048
     Dates: start: 20060629, end: 20060719
  54. DEXAMETHASONE [Suspect]
     Dosage: 40 MILLIGRAM
     Route: 048
     Dates: start: 20060223, end: 20060314
  55. COUMADIN [Concomitant]
     Dosage: 2.5-10MG
     Route: 065
  56. SODIUM BICARBONATE [Concomitant]
     Dosage: 650 MILLIGRAM
     Route: 065
  57. ACETAMINOPHEN [Concomitant]
     Dosage: 650 MILLIGRAM
     Route: 048
  58. FLOMAX [Concomitant]
     Dosage: .4 MILLIGRAM
     Route: 048
  59. LEXAPRO [Concomitant]
     Dosage: 10 MILLIGRAM
     Route: 048
  60. TOPROL-XL [Concomitant]
     Dosage: 25 MILLIGRAM
     Route: 048
  61. WHOLE BLOOD [Concomitant]
     Indication: FULL BLOOD COUNT DECREASED
     Route: 041
  62. PLATELETS [Concomitant]
     Indication: THROMBOCYTOPENIA
     Route: 041
  63. REVLIMID [Suspect]
     Dosage: 25 MILLIGRAM
     Route: 048
     Dates: start: 20060727, end: 20060816
  64. REVLIMID [Suspect]
     Dosage: 25 MILLIGRAM
     Route: 048
     Dates: start: 20061019, end: 20061108
  65. REVLIMID [Suspect]
     Dosage: 25 MILLIGRAM
     Route: 048
     Dates: start: 20070510, end: 20070515
  66. REVLIMID [Suspect]
     Dosage: 25 MILLIGRAM
     Route: 048
     Dates: start: 20070607, end: 20070822
  67. PHENYLEPHRINE HCL [Concomitant]
     Route: 065
  68. DIPHENHYDRAMINE HCL [Concomitant]
     Indication: PREMEDICATION
     Dosage: 25 MILLIGRAM
     Route: 048
  69. AMIODARONE HCL [Concomitant]
     Dosage: 200 MILLIGRAM
     Route: 048
  70. CHLORHEXIDINE GLUCONATE [Concomitant]
     Dosage: 15 MILLILITER
     Route: 048
  71. IRON SULFATETHIAMIN COMPOUND TAB [Concomitant]
     Dosage: 325 MILLIGRAM
     Route: 065
  72. REVLIMID [Suspect]
     Dosage: 25 MILLIGRAM
     Route: 048
     Dates: start: 20070118, end: 20070502
  73. DEXAMETHASONE [Suspect]
     Dosage: 40 MILLIGRAM
     Route: 048
     Dates: start: 20060727, end: 20060815
  74. DEXAMETHASONE [Suspect]
     Dosage: 20 MILLIGRAM
     Route: 048
     Dates: start: 20070830, end: 20070918
  75. PROTONIX [Concomitant]
     Dosage: 40
     Route: 041
  76. PERFUSIONIST'S ACD FORMULA [Concomitant]
     Dosage: 5 MILLILITER
     Route: 041
  77. GUAIFENESIN AND DEXTROMETHORPHAN HBR [Concomitant]
     Indication: COUGH
     Dosage: 10 MILLILITER
     Route: 048

REACTIONS (1)
  - 5Q MINUS SYNDROME [None]
